FAERS Safety Report 6900094-5 (Version None)
Quarter: 2010Q3

REPORT INFORMATION
  Report Type: 
  Country: None (occurrence: None)
  Receive Date: 20100708
  Receipt Date: 20100324
  Transmission Date: 20110219
  Serious: Yes (Other)
  Sender: FDA-Public Use
  Company Number: 2010038005

PATIENT
  Sex: Female

DRUGS (3)
  1. CHANTIX [Suspect]
     Indication: SMOKING CESSATION THERAPY
     Dosage: 0.5 MG, 1X/DAY, ORAL
     Route: 048
     Dates: start: 20100308, end: 20100301
  2. WELLBUTRIN [Concomitant]
  3. CONCERTA (METHYLPENIDATE HYDROCHLORIDE) [Concomitant]

REACTIONS (8)
  - FACIAL PAIN [None]
  - GINGIVAL PAIN [None]
  - INSOMNIA [None]
  - OROPHARYNGEAL PAIN [None]
  - PAIN IN JAW [None]
  - PHARYNGEAL OEDEMA [None]
  - SENSITIVITY OF TEETH [None]
  - TOOTHACHE [None]
